FAERS Safety Report 10205141 (Version 2)
Quarter: 2014Q2

REPORT INFORMATION
  Report Type: Spontaneous
  Country: US (occurrence: US)
  Receive Date: 20140529
  Receipt Date: 20140613
  Transmission Date: 20141212
  Serious: Yes (Death, Hospitalization)
  Sender: FDA-Public Use
  Company Number: US-JNJFOC-20140518682

PATIENT
  Age: 74 Year
  Sex: Male
  Weight: 86 kg

DRUGS (3)
  1. IMBRUVICA [Suspect]
     Indication: CHRONIC LYMPHOCYTIC LEUKAEMIA
     Route: 048
     Dates: start: 20140219, end: 20140514
  2. SIMVASTATIN [Concomitant]
  3. AMLODIPINE [Concomitant]

REACTIONS (5)
  - Lymphoma transformation [Fatal]
  - Sepsis [Not Recovered/Not Resolved]
  - Haematuria [Not Recovered/Not Resolved]
  - Pancytopenia [Not Recovered/Not Resolved]
  - Dyspnoea [Not Recovered/Not Resolved]
